FAERS Safety Report 6647367-1 (Version None)
Quarter: 2010Q1

REPORT INFORMATION
  Report Type: 
  Country: None (occurrence: None)
  Receive Date: 20100323
  Receipt Date: 20100316
  Transmission Date: 20100710
  Serious: Yes (Other)
  Sender: FDA-Public Use
  Company Number: US-GILEAD-2010-0027807

PATIENT
  Sex: Male

DRUGS (5)
  1. VIREAD [Suspect]
     Indication: HIV INFECTION
  2. EPZICOM [Concomitant]
     Indication: HIV INFECTION
  3. ISENTRESS [Concomitant]
     Indication: HIV INFECTION
  4. INTELENCE [Concomitant]
     Indication: HIV INFECTION
  5. TESTOSTERONE [Concomitant]

REACTIONS (2)
  - HEADACHE [None]
  - POLYCYTHAEMIA [None]
